FAERS Safety Report 9739037 (Version 2)
Quarter: 2013Q4

REPORT INFORMATION
  Report Type: Report from Study
  Country: PH (occurrence: PH)
  Receive Date: 20131209
  Receipt Date: 20131209
  Transmission Date: 20140711
  Serious: Yes (Hospitalization, Other)
  Sender: FDA-Public Use
  Company Number: PHHY2013PH138814

PATIENT
  Age: 69 Year
  Sex: Female

DRUGS (4)
  1. GLIVEC [Suspect]
     Indication: GASTROINTESTINAL STROMAL TUMOUR
     Dosage: 400 MG, DAILY
     Route: 048
     Dates: start: 20110211, end: 20130107
  2. GLIVEC [Suspect]
     Dosage: 800 MG, DAILY
     Route: 048
     Dates: start: 20130107, end: 20130813
  3. GLIVEC [Suspect]
     Dosage: 800 MG, UNK
     Route: 048
     Dates: start: 201311
  4. GLIVEC [Suspect]
     Dosage: 100 MG
     Route: 048

REACTIONS (3)
  - Brain neoplasm [Unknown]
  - Metastases to central nervous system [Unknown]
  - Vision blurred [Not Recovered/Not Resolved]
